FAERS Safety Report 5884783-X (Version None)
Quarter: 2008Q3

REPORT INFORMATION
  Report Type: 
  Country: None (occurrence: None)
  Receive Date: 20080915
  Receipt Date: 20080915
  Transmission Date: 20090109
  Serious: No
  Sender: FDA-Public Use
  Company Number: None

PATIENT
  Age: 42 Year
  Sex: Female
  Weight: 68.0396 kg

DRUGS (1)
  1. ADVAIR U/K [Suspect]
     Indication: CHRONIC OBSTRUCTIVE PULMONARY DISEASE
     Dosage: 2 PUFFS 2 TIMES DAILY PO  3 - 4 MONTHS
     Route: 048

REACTIONS (3)
  - APHONIA [None]
  - DRUG INEFFECTIVE [None]
  - DYSPHONIA [None]
